FAERS Safety Report 21866043 (Version 1)
Quarter: 2023Q1

REPORT INFORMATION
  Report Type: Spontaneous
  Country: US (occurrence: US)
  Receive Date: 20230116
  Receipt Date: 20230116
  Transmission Date: 20230418
  Serious: Yes (Death, Hospitalization, Other)
  Sender: FDA-Public Use
  Company Number: US-GLAXOSMITHKLINE-US2023004585

PATIENT

DRUGS (2)
  1. INCRUSE ELLIPTA [Suspect]
     Active Substance: UMECLIDINIUM BROMIDE
     Indication: Chronic obstructive pulmonary disease
     Dosage: UNK, QD (USE ONE INHALATION BY MOUTH ONCE A DAY)
     Route: 055
     Dates: start: 202112, end: 202212
  2. ADVAIR DISKUS [Suspect]
     Active Substance: FLUTICASONE PROPIONATE\SALMETEROL XINAFOATE
     Indication: Product used for unknown indication
     Dosage: UNK, BID (INHALATION BY MOUTH TWICE DAILY)
     Route: 055
     Dates: start: 202112, end: 202212

REACTIONS (3)
  - COVID-19 pneumonia [Fatal]
  - Dyspnoea [Unknown]
  - COVID-19 [Unknown]
